FAERS Safety Report 23831136 (Version 1)
Quarter: 2024Q2

REPORT INFORMATION
  Report Type: Spontaneous
  Country: US (occurrence: US)
  Receive Date: 20240508
  Receipt Date: 20240508
  Transmission Date: 20240715
  Serious: No
  Sender: FDA-Public Use
  Company Number: US-HALEON-2171630

PATIENT

DRUGS (2)
  1. ADVIL TARGETED RELIEF [Suspect]
     Active Substance: CAMPHOR (NATURAL)\CAPSAICIN\MENTHOL\METHYL SALICYLATE
     Indication: Pain
     Route: 061
  2. ADVIL [Suspect]
     Active Substance: IBUPROFEN
     Indication: Neck pain

REACTIONS (2)
  - Therapeutic product effect incomplete [Unknown]
  - Circumstance or information capable of leading to medication error [Unknown]
